FAERS Safety Report 25207702 (Version 1)
Quarter: 2025Q2

REPORT INFORMATION
  Report Type: Spontaneous
  Country: DE (occurrence: DE)
  Receive Date: 20250417
  Receipt Date: 20250417
  Transmission Date: 20250716
  Serious: Yes (Congenital Anomaly, Other)
  Sender: ABBVIE
  Company Number: DE-EMB-M202302454-1

PATIENT
  Weight: 2.22 kg

DRUGS (1)
  1. ESCITALOPRAM [Suspect]
     Active Substance: ESCITALOPRAM OXALATE
     Indication: Maternal exposure timing unspecified
     Route: 064

REACTIONS (2)
  - Congenital vesicoureteric reflux [Unknown]
  - Foetal exposure during pregnancy [Unknown]
